FAERS Safety Report 16033414 (Version 1)
Quarter: 2019Q2

REPORT INFORMATION
  Report Type: Spontaneous
  Country: US (occurrence: US)
  Receive Date: 20190304
  Receipt Date: 20190304
  Transmission Date: 20190711
  Serious: No
  Sender: FDA-Public Use
  Company Number: None

PATIENT
  Age: 62 Year
  Sex: Female
  Weight: 126 kg

DRUGS (1)
  1. PULMICORT TURBUHALER [Suspect]
     Active Substance: BUDESONIDE
     Indication: CHRONIC OBSTRUCTIVE PULMONARY DISEASE
     Dosage: DOSE 120 UNK PO BID
     Route: 048
     Dates: start: 20190228, end: 20190304

REACTIONS (5)
  - Insomnia [None]
  - Dry mouth [None]
  - Dry eye [None]
  - Nasal discomfort [None]
  - Mood swings [None]

NARRATIVE: CASE EVENT DATE: 20190304
